FAERS Safety Report 18383915 (Version 1)
Quarter: 2020Q4

REPORT INFORMATION
  Report Type: Spontaneous
  Country: US (occurrence: US)
  Receive Date: 20201014
  Receipt Date: 20201014
  Transmission Date: 20210114
  Serious: No
  Sender: FDA-Public Use
  Company Number: US-ELI_LILLY_AND_COMPANY-US201909001794

PATIENT

DRUGS (2)
  1. EMGALITY [Suspect]
     Active Substance: GALCANEZUMAB-GNLM
     Dosage: UNK, MONTHLY (1/M)
     Route: 065
     Dates: start: 20190831
  2. EMGALITY [Suspect]
     Active Substance: GALCANEZUMAB-GNLM
     Indication: MIGRAINE
     Dosage: UNK UNK, SINGLE
     Route: 065
     Dates: start: 20190730, end: 20190730

REACTIONS (12)
  - Pruritus [Unknown]
  - Urinary tract infection [Recovered/Resolved]
  - Headache [Recovering/Resolving]
  - Pelvic pain [Recovered/Resolved]
  - Abdominal pain [Unknown]
  - Dysgeusia [Unknown]
  - Paraesthesia oral [Unknown]
  - Dizziness [Unknown]
  - Nausea [Unknown]
  - Agitation [Unknown]
  - Head discomfort [Recovering/Resolving]
  - Feeling abnormal [Unknown]

NARRATIVE: CASE EVENT DATE: 20190831
